FAERS Safety Report 13689337 (Version 1)
Quarter: 2017Q2

REPORT INFORMATION
  Report Type: Spontaneous
  Country: US (occurrence: US)
  Receive Date: 20170625
  Receipt Date: 20170625
  Transmission Date: 20170830
  Serious: Yes (Life-Threatening, Disabling, Other)
  Sender: FDA-Public Use
  Company Number: None

PATIENT
  Age: 38 Year
  Sex: Male
  Weight: 81 kg

DRUGS (1)
  1. ALPRAZOLAM. [Suspect]
     Active Substance: ALPRAZOLAM
     Indication: ANXIETY
     Dosage: ?          OTHER STRENGTH:MG;QUANTITY:60 TABLET(S);?
     Route: 048
     Dates: start: 20071015, end: 20151215

REACTIONS (21)
  - Obsessive-compulsive disorder [None]
  - Insomnia [None]
  - Dysuria [None]
  - Depression [None]
  - Dysgraphia [None]
  - Vision blurred [None]
  - Derealisation [None]
  - Feeding disorder [None]
  - Tachyphrenia [None]
  - Tremor [None]
  - Memory impairment [None]
  - Weight decreased [None]
  - Dyschezia [None]
  - Suicidal ideation [None]
  - Impaired work ability [None]
  - Mental disorder [None]
  - Vomiting [None]
  - Depersonalisation/derealisation disorder [None]
  - Intrusive thoughts [None]
  - Drug tolerance increased [None]
  - Withdrawal syndrome [None]

NARRATIVE: CASE EVENT DATE: 20160701
